FAERS Safety Report 20699572 (Version 4)
Quarter: 2022Q2

REPORT INFORMATION
  Report Type: Report from Study
  Country: IT (occurrence: IT)
  Receive Date: 20220412
  Receipt Date: 20220509
  Transmission Date: 20220720
  Serious: Yes (Hospitalization, Other)
  Sender: FDA-Public Use
  Company Number: IT-ROCHE-3056513

PATIENT
  Age: 52 Year
  Sex: Female
  Weight: 65 kg

DRUGS (8)
  1. TRASTUZUMAB [Suspect]
     Active Substance: TRASTUZUMAB
     Indication: Invasive breast carcinoma
     Dosage: 8 MILLIGRAM/ LAST DOSE BEFORE SAE 01/03/2022 (384 MG)
     Route: 041
     Dates: start: 20211115
  2. PACLITAXEL [Suspect]
     Active Substance: PACLITAXEL
     Indication: Invasive breast carcinoma
     Dosage: 90 MILLIGRAM/SQ. METER/ LAST DOSE BEFORE SAE 01/03/2022 (132 MG)
     Route: 042
     Dates: start: 20211115
  3. PERTUZUMAB [Suspect]
     Active Substance: PERTUZUMAB
     Indication: Invasive breast carcinoma
     Dosage: 840 MILLIGRAM/ LAST DOSE BEFORE SAE 01/03/2022 (420 MG)
     Route: 042
     Dates: start: 20211115
  4. ATEZOLIZUMAB [Suspect]
     Active Substance: ATEZOLIZUMAB
     Indication: Invasive breast carcinoma
     Dosage: 1200 MILLIGRAM/ LAST DOSE BEFORE SAE18/01/2022
     Route: 041
     Dates: start: 20211115
  5. CARBOPLATIN [Suspect]
     Active Substance: CARBOPLATIN
     Indication: Invasive breast carcinoma
     Dosage: UNK/ AT AUC 2LAST DOSE BEFORE SAE 01/03/2022 (180 MG)
     Route: 042
     Dates: start: 20211115
  6. CEFIXIME [Concomitant]
     Active Substance: CEFIXIME
     Indication: Enteritis
     Dosage: UNK
     Dates: start: 20220311, end: 20220315
  7. CIPROFLOXACIN [Concomitant]
     Active Substance: CIPROFLOXACIN
     Indication: Enteritis
     Dosage: UNK
     Dates: start: 20220315, end: 20220316
  8. CERNEVIT [Concomitant]
     Active Substance: VITAMINS
     Indication: Enteritis
     Dosage: UNK
     Dates: start: 20220315, end: 20220315

REACTIONS (1)
  - Immune-mediated enterocolitis [Recovered/Resolved]

NARRATIVE: CASE EVENT DATE: 20220317
